FAERS Safety Report 4791026-7 (Version None)
Quarter: 2005Q4

REPORT INFORMATION
  Report Type: 
  Country: None (occurrence: None)
  Receive Date: 20051007
  Receipt Date: 20050928
  Transmission Date: 20060501
  Serious: Yes (Life-Threatening, Hospitalization)
  Sender: FDA-Public Use
  Company Number: JP-JNJFOC-20050806927

PATIENT
  Sex: Female

DRUGS (9)
  1. ITRIZOLE [Suspect]
     Route: 048
     Dates: start: 20050816, end: 20050822
  2. AMLODIPINE BESYLATE [Interacting]
     Indication: RENAL FAILURE CHRONIC
     Route: 048
  3. PRECIPITATED CALCIUM CARBONATE [Interacting]
     Indication: RENAL FAILURE CHRONIC
     Route: 048
  4. SEVELAMER HYDROCHLORIDE [Interacting]
     Indication: RENAL FAILURE CHRONIC
     Route: 048
  5. RANITIDINE HYDROCHLORIDE [Interacting]
     Indication: DRUG USE FOR UNKNOWN INDICATION
  6. TICLOPIDINE HYDROCHLORIDE [Interacting]
     Indication: SHUNT STENOSIS
     Route: 048
  7. FAMOTIDINE [Interacting]
     Indication: GASTRIC ULCER
     Route: 048
  8. REBAMIPIDE [Interacting]
     Indication: GASTRIC ULCER
     Route: 048
  9. SENNA LEAF [Interacting]
     Indication: CONSTIPATION
     Route: 048

REACTIONS (2)
  - DRUG INTERACTION [None]
  - HYPOGLYCAEMIA [None]
